FAERS Safety Report 7903478-1 (Version None)
Quarter: 2011Q4

REPORT INFORMATION
  Report Type: 
  Country: None (occurrence: None)
  Receive Date: 20111107
  Receipt Date: 20111021
  Transmission Date: 20120403
  Serious: Yes (Hospitalization)
  Sender: FDA-Public Use
  Company Number: NSR_00297_2011

PATIENT
  Age: 34 Year
  Sex: Female

DRUGS (3)
  1. LAMOTRIGINE [Suspect]
     Indication: PRODUCT USED FOR UNKNOWN INDICATION
     Dosage: (DF ORAL)
     Route: 048
  2. ETHANOL [Suspect]
     Dosage: (DF ORAL)
     Route: 048
  3. FLUOXETINE HCL [Suspect]
     Indication: PRODUCT USED FOR UNKNOWN INDICATION
     Dosage: (DF ORAL)
     Route: 048

REACTIONS (13)
  - BLOOD PRESSURE DECREASED [None]
  - AGITATION [None]
  - TOXICITY TO VARIOUS AGENTS [None]
  - MULTIPLE DRUG OVERDOSE INTENTIONAL [None]
  - TACHYCARDIA [None]
  - NEUROTOXICITY [None]
  - MENTAL IMPAIRMENT [None]
  - ARRHYTHMIA [None]
  - DEPRESSED LEVEL OF CONSCIOUSNESS [None]
  - NO THERAPEUTIC RESPONSE [None]
  - MATERNAL EXPOSURE DURING PREGNANCY [None]
  - HAEMODIALYSIS [None]
  - TONIC CONVULSION [None]
